FAERS Safety Report 17243212 (Version 2)
Quarter: 2020Q1

REPORT INFORMATION
  Report Type: Spontaneous
  Country: DE (occurrence: DE)
  Receive Date: 20200107
  Receipt Date: 20200229
  Transmission Date: 20200409
  Serious: Yes (Hospitalization, Other)
  Sender: FDA-Public Use
  Company Number: DE-DRREDDYS-GER/GER/19/0117973

PATIENT
  Age: 38 Year
  Sex: Male
  Weight: 100 kg

DRUGS (12)
  1. LAMOTRIGINE. [Concomitant]
     Active Substance: LAMOTRIGINE
     Indication: EPILEPSY
     Dosage: 600 MILLIGRAM, UNK
  2. ZOPICLONE [Concomitant]
     Active Substance: ZOPICLONE
     Indication: PRODUCT USED FOR UNKNOWN INDICATION
     Dosage: 7.5 MILLIGRAM, ONCE DAILY (QD)
     Route: 048
  3. LAMOTRIGINE. [Concomitant]
     Active Substance: LAMOTRIGINE
     Dosage: 100 MG 2 TABLETS IN MORNING AND 2 TABLETS IN EVENING, 2X/DAY (BID)
     Dates: start: 20190827, end: 201908
  4. NEBIVOLOL. [Concomitant]
     Active Substance: NEBIVOLOL
     Indication: HYPERTENSION
     Dosage: 5 MILLIGRAM, ONCE DAILY (QD)
     Route: 048
  5. LAMOTRIGINE. [Concomitant]
     Active Substance: LAMOTRIGINE
     Dosage: 100 MG 3 TABLETS IN MORNING AND 2 AND HALF TABLETS IN EVENING, 2X/DAY (BID)
     Dates: start: 20190906, end: 201909
  6. LAMOTRIGINE. [Concomitant]
     Active Substance: LAMOTRIGINE
     Dosage: 100 MG 2 AND HALF TABLETS IN MORNING AND 2 TABLETS IN EVENING, 2X/DAY (BID)
     Dates: start: 20190831, end: 201909
  7. LEVETIRACETAM. [Suspect]
     Active Substance: LEVETIRACETAM
     Indication: EPILEPSY
     Dosage: 500 MG HALF TABLET TWICE DAILY, 2X/DAY (BID)
     Route: 048
     Dates: start: 20190915, end: 20190929
  8. LAMOTRIGINE. [Concomitant]
     Active Substance: LAMOTRIGINE
     Dosage: 100 MG 3 AND HALF TABLETS IN MORNING AND 3 AND HALF TABLETS IN EVENING, 2X/DAY (BID)
     Dates: start: 20190916
  9. LEVETIRACETAM. [Suspect]
     Active Substance: LEVETIRACETAM
     Dosage: 500 MILLIGRAM, 2X/DAY (BID)
     Route: 048
  10. LAMOTRIGINE. [Concomitant]
     Active Substance: LAMOTRIGINE
     Dosage: 100 MG 3 AND HALF TABLETS IN MORNING AND 3 TABLETS IN EVENING, 2X/DAY (BID)
     Dates: start: 20190912, end: 201909
  11. LAMOTRIGINE. [Concomitant]
     Active Substance: LAMOTRIGINE
     Dosage: 100 MG 1 AND HALF TABLET TWICE DAILY, 2X/DAY (BID)
  12. LAMOTRIGINE. [Concomitant]
     Active Substance: LAMOTRIGINE
     Dosage: 100 MG 3 TABLETS IN MORNING AND 3 TABLETS IN EVENING
     Dates: start: 20190909, end: 201909

REACTIONS (5)
  - Cardiac disorder [Recovered/Resolved]
  - Dysphoria [Recovered/Resolved]
  - Burnout syndrome [Unknown]
  - Epilepsy [Unknown]
  - Seizure [Unknown]
